FAERS Safety Report 23268105 (Version 1)
Quarter: 2023Q4

REPORT INFORMATION
  Report Type: Spontaneous
  Country: US (occurrence: US)
  Receive Date: 20231206
  Receipt Date: 20231206
  Transmission Date: 20240110
  Serious: No
  Sender: FDA-Public Use
  Company Number: US-BRAINTREE LABORATORIES, INC.-2023BTE00759

PATIENT
  Age: 42 Year
  Sex: Female
  Weight: 56.689 kg

DRUGS (3)
  1. SUTAB [Suspect]
     Active Substance: MAGNESIUM SULFATE\POTASSIUM CHLORIDE\SODIUM SULFATE
     Dosage: UNK
     Dates: start: 20231024, end: 20231024
  2. LOSARTAN [Concomitant]
     Active Substance: LOSARTAN
  3. CELECOXIB [Concomitant]
     Active Substance: CELECOXIB

REACTIONS (1)
  - Drug hypersensitivity [Unknown]

NARRATIVE: CASE EVENT DATE: 20231024
